FAERS Safety Report 7156009-0 (Version None)
Quarter: 2010Q4

REPORT INFORMATION
  Report Type: 
  Country: None (occurrence: None)
  Receive Date: 20101214
  Receipt Date: 20101210
  Transmission Date: 20110411
  Serious: Yes (Life-Threatening)
  Sender: FDA-Public Use
  Company Number: JP-ASTRAZENECA-2010SE57294

PATIENT
  Age: 59 Year
  Sex: Male

DRUGS (3)
  1. OMEPRAL [Suspect]
     Dosage: DOSE UNKNOWN
     Route: 048
  2. ASPIRIN [Suspect]
     Dosage: DOSE UNKNOWN
     Route: 048
  3. CLOPIDOGREL BISULFATE [Suspect]
     Dosage: DOSE UNKNOWN
     Route: 048

REACTIONS (1)
  - CORONARY ARTERY THROMBOSIS [None]
